FAERS Safety Report 13290614 (Version 2)
Quarter: 2017Q1

REPORT INFORMATION
  Report Type: Spontaneous
  Country: KW (occurrence: KW)
  Receive Date: 20170302
  Receipt Date: 20170328
  Transmission Date: 20170428
  Serious: Yes (Other)
  Sender: FDA-Public Use
  Company Number: KW-RARE DISEASE THERAPEUTICS, INC.-1063742

PATIENT
  Age: 15 Year
  Sex: Male
  Weight: 56 kg

DRUGS (5)
  1. OMEGA 3 (FISH OIL) [Concomitant]
     Active Substance: OMEGA-3 FATTY ACIDS
  2. VITAMIN B6 [Concomitant]
     Active Substance: PYRIDOXINE HYDROCHLORIDE
  3. VITAMIN B12 [Concomitant]
     Active Substance: CYANOCOBALAMIN
  4. FOLINIC ACID [Concomitant]
     Active Substance: LEUCOVORIN
  5. CYSTADANE [Suspect]
     Active Substance: BETAINE
     Indication: CYSTATHIONINE BETA-SYNTHASE DEFICIENCY
     Route: 048
     Dates: start: 2015

REACTIONS (1)
  - Neutropenia [Not Recovered/Not Resolved]
